FAERS Safety Report 15565244 (Version 5)
Quarter: 2018Q4

REPORT INFORMATION
  Report Type: Spontaneous
  Country: PL (occurrence: PL)
  Receive Date: 20181030
  Receipt Date: 20181204
  Transmission Date: 20190205
  Serious: Yes (Hospitalization, Other)
  Sender: FDA-Public Use
  Company Number: PHHY2018PL138154

PATIENT
  Sex: Female

DRUGS (10)
  1. AZITHROMYCIN ANHYDROUS. [Suspect]
     Active Substance: AZITHROMYCIN ANHYDROUS
     Indication: EYE INFECTION TOXOPLASMAL
  2. SULFADOXINE PYRIME [Suspect]
     Active Substance: PYRIMETHAMINE\SULFADOXINE
     Indication: TOXOPLASMOSIS
     Dosage: PYRIMETHAMINE 25MG, SULFADOXINE 500 MG, QD(ON DAYS 3?-21)
     Route: 065
  3. PREDNISONE. [Suspect]
     Active Substance: PREDNISONE
     Indication: EYE INFECTION TOXOPLASMAL
  4. RANITIDINE. [Concomitant]
     Active Substance: RANITIDINE
     Indication: PRODUCT USED FOR UNKNOWN INDICATION
     Route: 065
  5. AZITHROMYCIN ANHYDROUS. [Suspect]
     Active Substance: AZITHROMYCIN ANHYDROUS
     Indication: TOXOPLASMOSIS
     Dosage: 500 MG, QD
     Route: 065
  6. SULFADOXINE PYRIME [Suspect]
     Active Substance: PYRIMETHAMINE\SULFADOXINE
     Indication: EYE INFECTION TOXOPLASMAL
     Dosage: PYRIMETHAMINE 25MG, SULFADOXINE 500 MG, BID
     Route: 065
  7. SPIRAMYCIN [Suspect]
     Active Substance: SPIRAMYCIN
     Indication: TOXOPLASMOSIS
     Dosage: 3 MIU, TID
     Route: 065
  8. OMEPRAZOLE. [Concomitant]
     Active Substance: OMEPRAZOLE
     Indication: PRODUCT USED FOR UNKNOWN INDICATION
     Route: 065
  9. PREDNISONE. [Suspect]
     Active Substance: PREDNISONE
     Indication: TOXOPLASMOSIS
     Dosage: 40 MG QD (IN MORNING)
     Route: 048
  10. SPIRAMYCIN [Suspect]
     Active Substance: SPIRAMYCIN
     Indication: EYE INFECTION TOXOPLASMAL

REACTIONS (3)
  - Leukopenia [Unknown]
  - Thrombocytopenia [Unknown]
  - Abdominal pain [Unknown]
